FAERS Safety Report 9376103 (Version 2)
Quarter: 2013Q3

REPORT INFORMATION
  Report Type: Report from Study
  Country: AR (occurrence: AR)
  Receive Date: 20130701
  Receipt Date: 20130704
  Transmission Date: 20140515
  Serious: Yes (Other)
  Sender: FDA-Public Use
  Company Number: AR-ROCHE-1242096

PATIENT
  Age: 75 Year
  Sex: Male

DRUGS (1)
  1. RANIBIZUMAB [Suspect]
     Indication: RETINAL DISORDER
     Dosage: ONE AMPULE
     Route: 050

REACTIONS (2)
  - H1N1 influenza [Recovered/Resolved]
  - Visual impairment [Unknown]
